FAERS Safety Report 4837720-0 (Version None)
Quarter: 2005Q4

REPORT INFORMATION
  Report Type: 
  Country: None (occurrence: None)
  Receive Date: 20051128
  Receipt Date: 20051004
  Transmission Date: 20060501
  Serious: Yes (Hospitalization)
  Sender: FDA-Public Use
  Company Number: US-MERCK-0510USA03104

PATIENT
  Age: 71 Year
  Sex: Female
  Weight: 76 kg

DRUGS (32)
  1. VIOXX [Suspect]
     Indication: ARTHRITIS
     Route: 048
     Dates: start: 20020401, end: 20040301
  2. BUFFERIN [Concomitant]
     Route: 065
  3. BENADRYL [Concomitant]
     Route: 065
  4. PREMARIN [Concomitant]
     Route: 065
  5. HYOSCYAMINE [Concomitant]
     Route: 065
  6. RANITIDINE [Concomitant]
     Route: 065
  7. AMITRIPTYLINE HYDROCHLORIDE [Concomitant]
     Route: 065
  8. PROTONIX [Concomitant]
     Route: 065
  9. EFFEXOR [Concomitant]
     Route: 065
  10. GUAIFED [Concomitant]
     Route: 065
  11. NEURONTIN [Concomitant]
     Route: 065
  12. DIFLUCAN [Concomitant]
     Route: 065
  13. RIFAMPIN [Concomitant]
     Route: 065
  14. COREG [Concomitant]
     Route: 065
  15. PLAVIX [Concomitant]
     Route: 065
  16. DIGOXIN [Concomitant]
     Route: 065
  17. LISINOPRIL [Concomitant]
     Route: 065
  18. ZOCOR [Concomitant]
     Route: 065
  19. FUROSEMIDE [Concomitant]
     Route: 065
  20. SPIRONOLACTONE [Concomitant]
     Route: 065
  21. TRAMADOLOR [Concomitant]
     Route: 065
  22. TEMAZEPAM [Concomitant]
     Route: 065
  23. METHYLPREDNISOLONE [Concomitant]
     Route: 065
  24. TRIAMCINOLONE [Concomitant]
     Route: 065
  25. PENICILLIN (UNSPECIFIED) [Concomitant]
     Route: 065
  26. AMOXICILLIN [Concomitant]
     Route: 065
  27. CEPHALEXIN [Concomitant]
     Route: 065
  28. [THERAPY UNSPECIFIED] [Concomitant]
     Route: 065
  29. [THERAPY UNSPECIFIED] [Concomitant]
     Route: 065
  30. PROMETHAZINE [Concomitant]
     Route: 065
  31. ASPIRIN [Concomitant]
     Route: 065
  32. MEDROL [Concomitant]
     Route: 065

REACTIONS (2)
  - CARDIAC DISORDER [None]
  - MYOCARDIAL INFARCTION [None]
